FAERS Safety Report 4869744-1 (Version None)
Quarter: 2005Q4

REPORT INFORMATION
  Report Type: 
  Country: None (occurrence: None)
  Receive Date: 20051223
  Receipt Date: 20051206
  Transmission Date: 20060501
  Serious: Yes (Other)
  Sender: FDA-Public Use
  Company Number: US_0511123790

PATIENT
  Age: 83 Year
  Sex: Female

DRUGS (5)
  1. FORTEO (TERIPARATIDE) PEN, DISOPOSABLE [Suspect]
     Indication: OSTEOPOROSIS
     Dosage: 20 UG, DAILY (1/D)
     Dates: start: 20050101
  2. FORTEO PEN, 250MCG/ML (3ML) (FORTEO PEN 250MCG/ML (3ML)) [Concomitant]
  3. PEN, DISPOSABLE [Concomitant]
  4. CALTRATE + D (CALCIUM CARBONATE, COLECALCIFEROL) [Concomitant]
  5. SERTRALINE HCL [Concomitant]

REACTIONS (1)
  - BLOOD ALKALINE PHOSPHATASE INCREASED [None]
